FAERS Safety Report 5838713-7 (Version None)
Quarter: 2008Q3

REPORT INFORMATION
  Report Type: 
  Country: None (occurrence: None)
  Receive Date: 20080808
  Receipt Date: 20080731
  Transmission Date: 20090109
  Serious: Yes (Death, Hospitalization)
  Sender: FDA-Public Use
  Company Number: B0531463A

PATIENT
  Age: 68 Year
  Sex: Female

DRUGS (13)
  1. ARIXTRA [Suspect]
     Indication: THROMBOSIS
     Dosage: 7.5MG PER DAY
     Route: 058
     Dates: start: 20080607, end: 20080609
  2. LOVENOX [Suspect]
     Dosage: 40000IU PER DAY
     Route: 058
     Dates: start: 20080605, end: 20080606
  3. VENTOLIN [Concomitant]
     Route: 065
  4. AVANDAMET [Concomitant]
     Dosage: 2MG TWICE PER DAY
     Route: 065
  5. ALLOPURINOL [Concomitant]
     Dosage: 300MG PER DAY
     Route: 065
  6. AUGMENTIN '125' [Concomitant]
     Dosage: 3G PER DAY
     Route: 065
  7. SPIRONOLACTONE [Concomitant]
     Dosage: 50MG PER DAY
     Route: 065
  8. LEVOTHYROX [Concomitant]
     Dosage: 175MCG PER DAY
     Route: 065
  9. AMARYL [Concomitant]
     Dosage: 4MG PER DAY
     Route: 065
  10. LASIX [Concomitant]
     Dosage: 40MG TWICE PER DAY
     Route: 065
  11. ATROVENT [Concomitant]
     Route: 065
  12. LIPANTHYL [Concomitant]
     Dosage: 160MG PER DAY
     Route: 065
  13. SOLUPRED [Concomitant]
     Dosage: 40MG PER DAY
     Route: 065

REACTIONS (6)
  - ABDOMINAL PAIN [None]
  - ATELECTASIS [None]
  - BLOOD CREATININE INCREASED [None]
  - HAEMATOMA [None]
  - HAEMORRHAGE [None]
  - HYPOVOLAEMIC SHOCK [None]
